FAERS Safety Report 5274327-8 (Version None)
Quarter: 2007Q1

REPORT INFORMATION
  Report Type: 
  Country: None (occurrence: None)
  Receive Date: 20070323
  Receipt Date: 20070313
  Transmission Date: 20070707
  Serious: Yes (Other)
  Sender: FDA-Public Use
  Company Number: US-PFIZER INC-2007021111

PATIENT
  Sex: Male
  Weight: 93 kg

DRUGS (6)
  1. CHANTIX [Suspect]
     Indication: SMOKING CESSATION THERAPY
     Route: 048
  2. TOPROL-XL [Concomitant]
  3. MS CONTIN [Concomitant]
  4. DILAUDID [Concomitant]
  5. ZOLOFT [Concomitant]
  6. PRILOSEC [Concomitant]
     Dosage: FREQ:DAILY

REACTIONS (5)
  - FATIGUE [None]
  - INTERNATIONAL NORMALISED RATIO FLUCTUATION [None]
  - LISTLESS [None]
  - NAUSEA [None]
  - VOMITING [None]
